FAERS Safety Report 10414047 (Version 2)
Quarter: 2014Q3

REPORT INFORMATION
  Report Type: Report from Study
  Country: US (occurrence: US)
  Receive Date: 20140827
  Receipt Date: 20140827
  Transmission Date: 20150326
  Serious: Yes (Hospitalization, Other)
  Sender: FDA-Public Use
  Company Number: US-009507513-2011SP020235

PATIENT
  Age: 38 Year
  Sex: Female
  Weight: 67.13 kg

DRUGS (5)
  1. GANIRELIX ACETATE INJECTION [Concomitant]
     Active Substance: GANIRELIX ACETATE
     Indication: PROPHYLAXIS
     Dosage: 0.25 MG, QD
     Route: 058
     Dates: start: 20110418, end: 20110423
  2. CRINONE [Concomitant]
     Active Substance: PROGESTERONE
     Indication: LUTEAL PHASE DEFICIENCY
     Dosage: 90 MG, QAM
     Route: 067
     Dates: start: 20110426
  3. OVIDREL [Suspect]
     Active Substance: CHORIOGONADOTROPIN ALFA
     Indication: OVULATION INDUCTION
     Dosage: 250 ?G, ONCE
     Route: 058
     Dates: start: 20110423, end: 20110423
  4. PLACEBO [Suspect]
     Active Substance: UNSPECIFIED INGREDIENT
     Indication: ASSISTED FERTILISATION
     Dosage: UNK
     Route: 058
     Dates: start: 20110414, end: 20110414
  5. FOLLITROPIN BETA [Suspect]
     Active Substance: FOLLITROPIN
     Indication: ASSISTED FERTILISATION
     Dosage: 300 IU, QD
     Route: 058
     Dates: start: 20110414, end: 20110422

REACTIONS (3)
  - Hemianopia [Recovered/Resolved]
  - Cerebral ischaemia [Recovered/Resolved]
  - Ovarian hyperstimulation syndrome [Recovered/Resolved]

NARRATIVE: CASE EVENT DATE: 20110504
